FAERS Safety Report 6387697-4 (Version None)
Quarter: 2009Q3

REPORT INFORMATION
  Report Type: 
  Country: None (occurrence: None)
  Receive Date: 20090930
  Receipt Date: 20090914
  Transmission Date: 20100115
  Serious: Yes (Hospitalization)
  Sender: FDA-Public Use
  Company Number: MC200700150

PATIENT
  Age: 60 Year
  Sex: Male
  Weight: 108 kg

DRUGS (4)
  1. ANGIOMAX [Suspect]
     Indication: PERCUTANEOUS CORONARY INTERVENTION
     Dosage: 16 ML, BOLUS, IV BOLUS; 37 ML, HR, INTRAVENOUS
     Route: 040
     Dates: start: 20070209, end: 20070209
  2. ANGIOMAX [Suspect]
     Indication: PERCUTANEOUS CORONARY INTERVENTION
     Dosage: 16 ML, BOLUS, IV BOLUS; 37 ML, HR, INTRAVENOUS
     Route: 040
     Dates: start: 20070209, end: 20070209
  3. CANGRELOR FOR INJECTION (CANGRELOR) INJECTION [Suspect]
     Dosage: 8 ML, BOLUS, IV BOLUS; 64.2 ML, HR, INTRAVENOUS
     Route: 040
     Dates: start: 20070209, end: 20070209
  4. CANGRELOR FOR INJECTION (CANGRELOR) INJECTION [Suspect]
     Dosage: 8 ML, BOLUS, IV BOLUS; 64.2 ML, HR, INTRAVENOUS
     Route: 040
     Dates: start: 20070209, end: 20070209

REACTIONS (3)
  - CEREBROVASCULAR ACCIDENT [None]
  - GINGIVAL BLEEDING [None]
  - OPHTHALMOPLEGIA [None]
